FAERS Safety Report 7085597-8 (Version None)
Quarter: 2010Q4

REPORT INFORMATION
  Report Type: 
  Country: None (occurrence: None)
  Receive Date: 20101105
  Receipt Date: 20101025
  Transmission Date: 20110411
  Serious: Yes (Hospitalization, Other)
  Sender: FDA-Public Use
  Company Number: US-JNJFOC-20100907506

PATIENT
  Sex: Female
  Weight: 51.71 kg

DRUGS (7)
  1. REMICADE [Suspect]
     Indication: COLITIS ULCERATIVE
     Route: 042
  2. REMICADE [Suspect]
     Route: 042
  3. REMICADE [Suspect]
     Route: 042
  4. REMICADE [Suspect]
     Indication: CROHN'S DISEASE
     Route: 042
  5. REMICADE [Suspect]
     Route: 042
  6. REMICADE [Suspect]
     Route: 042
  7. PREMEDICATION [Concomitant]
     Indication: PREMEDICATION

REACTIONS (8)
  - COLITIS ULCERATIVE [None]
  - DRUG HYPERSENSITIVITY [None]
  - DYSPNOEA [None]
  - FLUSHING [None]
  - INFUSION RELATED REACTION [None]
  - PYREXIA [None]
  - STRIDOR [None]
  - WHEEZING [None]
